FAERS Safety Report 17064625 (Version 5)
Quarter: 2021Q1

REPORT INFORMATION
  Report Type: Report from Study
  Country: CA (occurrence: CA)
  Receive Date: 20191122
  Receipt Date: 20210118
  Transmission Date: 20210419
  Serious: Yes (Hospitalization)
  Sender: FDA-Public Use
  Company Number: CA-TEVA-2019-CA-1060094

PATIENT
  Age: 39 Year
  Sex: Female
  Weight: 81 kg

DRUGS (11)
  1. SINGULAIR [Concomitant]
     Active Substance: MONTELUKAST SODIUM
  2. CINQAIR [Suspect]
     Active Substance: RESLIZUMAB
     Dosage: INFUSION ON 15?OCT?2019 WITH BATCH NUMBER: 932151
     Route: 042
  3. CINQAIR [Suspect]
     Active Substance: RESLIZUMAB
     Dosage: INFUSION ON 12?NOV?2019
     Route: 042
  4. CINQAIR [Suspect]
     Active Substance: RESLIZUMAB
     Dosage: INFUSION ON 04?FEB?2020
     Route: 042
  5. CINQAIR [Suspect]
     Active Substance: RESLIZUMAB
     Indication: ASTHMA
     Dosage: INFUSION ON 30?APR?2019 WAS 931742 AND EXPIRY DATE WAS MAR?2020
     Route: 042
     Dates: start: 20190402
  6. PREDNISONE 15 MG [Concomitant]
     Active Substance: PREDNISONE
  7. VENTOLIN [Concomitant]
     Active Substance: ALBUTEROL SULFATE
  8. ZENHALE [Concomitant]
     Active Substance: FORMOTEROL FUMARATE\MOMETASONE FUROATE
  9. CINQAIR [Suspect]
     Active Substance: RESLIZUMAB
     Dosage: INFUSION ON 17?SEP?2019 WITH BATCH NUMBER: 932151
     Route: 042
  10. CINQAIR [Suspect]
     Active Substance: RESLIZUMAB
     Dosage: INFUSION ON 10?DEC?2019
     Route: 042
  11. CINQAIR [Suspect]
     Active Substance: RESLIZUMAB
     Dosage: INFUSION ON 08AN2020
     Route: 042

REACTIONS (7)
  - Cold sweat [Not Recovered/Not Resolved]
  - Malaise [Unknown]
  - Dyspnoea [Not Recovered/Not Resolved]
  - Asthma [Recovered/Resolved]
  - Dizziness [Not Recovered/Not Resolved]
  - Fatigue [Not Recovered/Not Resolved]
  - Migraine [Not Recovered/Not Resolved]

NARRATIVE: CASE EVENT DATE: 201905
